FAERS Safety Report 14768732 (Version 5)
Quarter: 2022Q4

REPORT INFORMATION
  Report Type: Spontaneous
  Country: None (occurrence: FR)
  Receive Date: 20180417
  Receipt Date: 20221114
  Transmission Date: 20230112
  Serious: Yes (Hospitalization, Other)
  Sender: FDA-Public Use
  Company Number: FR-ASCEND THERAPEUTICS-2045859

PATIENT
  Age: 29 Year
  Sex: Female
  Weight: 55 kg

DRUGS (5)
  1. ESTROGEL [Suspect]
     Active Substance: ESTRADIOL
     Indication: Product used for unknown indication
     Route: 065
     Dates: start: 2012, end: 201711
  2. ACETAMINOPHEN\PROPOXYPHENE HYDROCHLORIDE [Suspect]
     Active Substance: ACETAMINOPHEN\PROPOXYPHENE HYDROCHLORIDE
     Route: 048
  3. CYPROTERONE ACETATE [Suspect]
     Active Substance: CYPROTERONE ACETATE
     Route: 048
     Dates: end: 20040615
  4. CYPROTERONE ACETATE [Suspect]
     Active Substance: CYPROTERONE ACETATE
     Route: 065
     Dates: start: 2012, end: 201711
  5. ESTRADIOL [Suspect]
     Active Substance: ESTRADIOL
     Route: 065
     Dates: start: 2012, end: 201711

REACTIONS (13)
  - Amnesia [Unknown]
  - Mood swings [Unknown]
  - Irritability [Unknown]
  - Irritability [Unknown]
  - Frontotemporal dementia [Unknown]
  - Frontotemporal dementia [Unknown]
  - Aphasia [Unknown]
  - Aphasia [Unknown]
  - Meningioma [Unknown]
  - Headache [Unknown]
  - Amnesia [Unknown]
  - Meningioma [Unknown]
  - Headache [Unknown]
